FAERS Safety Report 9580908 (Version 1)
Quarter: 2013Q4

REPORT INFORMATION
  Report Type: Spontaneous
  Country: US (occurrence: US)
  Receive Date: 20131002
  Receipt Date: 20131002
  Transmission Date: 20140711
  Serious: No
  Sender: FDA-Public Use
  Company Number: US-PFIZER INC-2013281312

PATIENT
  Sex: Male

DRUGS (1)
  1. MYCOBUTIN [Suspect]
     Dosage: 300 MG (BY TAKING 2 CAPSULES OF 150MG), 1X/DAY
     Route: 048

REACTIONS (2)
  - Dysphagia [Unknown]
  - Product quality issue [Unknown]
